FAERS Safety Report 23182461 (Version 1)
Quarter: 2023Q4

REPORT INFORMATION
  Report Type: Spontaneous
  Country: AU (occurrence: AU)
  Receive Date: 20231114
  Receipt Date: 20231114
  Transmission Date: 20240110
  Serious: Yes (Life-Threatening, Other)
  Sender: FDA-Public Use
  Company Number: AU-PFIZER INC-PV202300182573

PATIENT
  Age: 54 Year
  Sex: Female
  Weight: 64 kg

DRUGS (7)
  1. FENTANYL CITRATE [Suspect]
     Active Substance: FENTANYL CITRATE
     Indication: Anaesthesia
     Dosage: 1600 UG (25 UG/KG)
  2. LIDOCAINE [Suspect]
     Active Substance: LIDOCAINE
     Indication: Anaesthesia
     Dosage: 1 MG/KG
     Route: 061
  3. PANCURONIUM [Suspect]
     Active Substance: PANCURONIUM
     Indication: Anaesthesia
     Dosage: 8 MG
  4. NITROUS OXIDE [Suspect]
     Active Substance: NITROUS OXIDE
     Indication: Anaesthesia
     Dosage: 50 PER CENT OXYGEN
  5. MORPHINE [Concomitant]
     Active Substance: MORPHINE
     Dosage: 7.5 MG
     Route: 030
  6. SCOPOLAMINE [Concomitant]
     Active Substance: SCOPOLAMINE
     Dosage: 0.3 MG
     Route: 030
  7. DIAZEPAM [Concomitant]
     Active Substance: DIAZEPAM
     Dosage: 7 MG
     Route: 042

REACTIONS (1)
  - Bradycardia [Recovered/Resolved]
